FAERS Safety Report 5498167-X (Version None)
Quarter: 2007Q4

REPORT INFORMATION
  Report Type: 
  Country: None (occurrence: None)
  Receive Date: 20071025
  Receipt Date: 20070406
  Transmission Date: 20080405
  Serious: No
  Sender: FDA-Public Use
  Company Number: A0646178A

PATIENT
  Age: 58 Year
  Sex: Female

DRUGS (1)
  1. ADVAIR DISKUS 100/50 [Suspect]
     Indication: BRONCHIECTASIS
     Dosage: 1PUFF TWICE PER DAY
     Route: 055

REACTIONS (3)
  - PHARYNGOLARYNGEAL DISCOMFORT [None]
  - SPUTUM RETENTION [None]
  - THROAT IRRITATION [None]
